FAERS Safety Report 4821924-7 (Version None)
Quarter: 2005Q4

REPORT INFORMATION
  Report Type: 
  Country: None (occurrence: None)
  Receive Date: 20051103
  Receipt Date: 20051018
  Transmission Date: 20060501
  Serious: Yes (Hospitalization)
  Sender: FDA-Public Use
  Company Number: EWC051046614

PATIENT
  Age: 65 Year
  Sex: Female

DRUGS (1)
  1. FORSTEO (TERIPARATIDE) [Suspect]
     Indication: OSTEOPOROSIS
     Dates: start: 20050501

REACTIONS (1)
  - SYSTEMIC SCLEROSIS [None]
